FAERS Safety Report 15130189 (Version 1)
Quarter: 2018Q3

REPORT INFORMATION
  Report Type: Spontaneous
  Country: US (occurrence: US)
  Receive Date: 20180711
  Receipt Date: 20180711
  Transmission Date: 20181010
  Serious: No
  Sender: FDA-Public Use
  Company Number: US-PFIZER INC-2018280314

PATIENT
  Age: 15 Year
  Sex: Female

DRUGS (1)
  1. EUCRISA [Suspect]
     Active Substance: CRISABOROLE
     Indication: SKIN DISORDER
     Dosage: UNK, 2X/DAY (APPLY TO AFFECTED AREAS TWICE DAILY)
     Dates: start: 201806, end: 201806

REACTIONS (3)
  - Skin discolouration [Not Recovered/Not Resolved]
  - Application site pain [Unknown]
  - Eczema [Not Recovered/Not Resolved]
